FAERS Safety Report 6311535-9 (Version None)
Quarter: 2009Q3

REPORT INFORMATION
  Report Type: 
  Country: None (occurrence: None)
  Receive Date: 20090817
  Receipt Date: 20090806
  Transmission Date: 20100115
  Serious: Yes (Other)
  Sender: FDA-Public Use
  Company Number: JP-PFIZER INC-2009252145

PATIENT
  Age: 72 Year

DRUGS (3)
  1. HALCION [Suspect]
     Dosage: 0.125 MG, 1X/DAY
     Route: 048
  2. HALCION [Suspect]
     Dosage: 0.25 OR 0.5 MG, 1X/DAY
     Dates: start: 20090804
  3. TRIAZOLAM [Concomitant]

REACTIONS (1)
  - DELIRIUM [None]
